FAERS Safety Report 7632093-2 (Version None)
Quarter: 2011Q3

REPORT INFORMATION
  Report Type: 
  Country: None (occurrence: None)
  Receive Date: 20110725
  Receipt Date: 20110725
  Transmission Date: 20111222
  Serious: Yes (Hospitalization, Other)
  Sender: FDA-Public Use
  Company Number: None

PATIENT
  Sex: Female
  Weight: 99.79 kg

DRUGS (1)
  1. PAROXETINE HCL [Suspect]
     Indication: ANXIETY
     Dosage: 10 MG
     Route: 048
     Dates: start: 20110708, end: 20110721

REACTIONS (11)
  - PARAESTHESIA [None]
  - CHEST PAIN [None]
  - FLANK PAIN [None]
  - NAUSEA [None]
  - OCULAR HYPERAEMIA [None]
  - INSOMNIA [None]
  - ARTHRALGIA [None]
  - HEADACHE [None]
  - VARICOSE VEIN [None]
  - VEIN PAIN [None]
  - MUSCLE SPASMS [None]
